FAERS Safety Report 6259075-X (Version None)
Quarter: 2009Q3

REPORT INFORMATION
  Report Type: 
  Country: None (occurrence: None)
  Receive Date: 20090707
  Receipt Date: 20090625
  Transmission Date: 20100115
  Serious: Yes (Other)
  Sender: FDA-Public Use
  Company Number: DE-ELI_LILLY_AND_COMPANY-DE200905004857

PATIENT
  Sex: Male

DRUGS (3)
  1. BYETTA [Suspect]
     Indication: TYPE 2 DIABETES MELLITUS
     Dosage: 5 UG, 2/D
     Route: 058
     Dates: start: 20090317, end: 20090520
  2. AMARYL [Concomitant]
     Dosage: 3 MG, DAILY (1/D)
     Route: 065
  3. METFORMIN [Concomitant]
     Dosage: 850 UNK, 2/D
     Route: 065

REACTIONS (1)
  - PANCREATITIS [None]
